FAERS Safety Report 10384686 (Version 1)
Quarter: 2014Q3

REPORT INFORMATION
  Report Type: Spontaneous
  Country: HR (occurrence: HR)
  Receive Date: 20140814
  Receipt Date: 20140814
  Transmission Date: 20150326
  Serious: Yes (Death, Other)
  Sender: FDA-Public Use
  Company Number: PHHY2014HR096838

PATIENT
  Age: 78 Year
  Sex: Female

DRUGS (6)
  1. DOBUTAMIN [Concomitant]
  2. THEOPHYLLINE [Concomitant]
     Active Substance: THEOPHYLLINE
  3. NORADRENALIN//NOREPINEPHRINE [Concomitant]
  4. RALOXIFENE [Concomitant]
     Active Substance: RALOXIFENE
  5. AMIODARONE [Suspect]
     Active Substance: AMIODARONE
     Indication: ATRIAL FIBRILLATION
     Dosage: 300 MG
     Route: 042
  6. AMIODARONE [Suspect]
     Active Substance: AMIODARONE
     Dosage: 1842 MG, TOTAL DOSE

REACTIONS (4)
  - General physical health deterioration [Unknown]
  - Liver injury [Recovered/Resolved]
  - Hepatic enzyme increased [Recovered/Resolved]
  - Sepsis [Fatal]
